FAERS Safety Report 5880865-7 (Version None)
Quarter: 2008Q3

REPORT INFORMATION
  Report Type: 
  Country: None (occurrence: None)
  Receive Date: 20080912
  Receipt Date: 20080611
  Transmission Date: 20090109
  Serious: No
  Sender: FDA-Public Use
  Company Number: US-ABBOTT-08P-163-0456731-00

PATIENT
  Sex: Female
  Weight: 92.162 kg

DRUGS (10)
  1. HUMIRA [Suspect]
     Indication: COLITIS ULCERATIVE
     Route: 058
     Dates: start: 20080509, end: 20080509
  2. HUMIRA [Suspect]
     Route: 058
     Dates: start: 20080523, end: 20080523
  3. HUMIRA [Suspect]
     Route: 058
  4. ENTECORT [Concomitant]
     Indication: COLITIS ULCERATIVE
     Route: 048
  5. VALSARTAN [Concomitant]
     Indication: BLOOD PRESSURE
     Route: 048
  6. LEVOTHYROXINE SODIUM [Concomitant]
     Indication: DRUG USE FOR UNKNOWN INDICATION
     Route: 048
  7. LANSOPRAZOLE [Concomitant]
     Indication: DRUG USE FOR UNKNOWN INDICATION
     Route: 048
  8. BUDESONIDE [Concomitant]
     Indication: DRUG USE FOR UNKNOWN INDICATION
  9. MULTI-VITAMIN [Concomitant]
     Indication: DRUG USE FOR UNKNOWN INDICATION
     Route: 048
  10. DROSPIRENONE W/ETHINYLESTRADIOL [Concomitant]
     Indication: DRUG USE FOR UNKNOWN INDICATION
     Route: 048

REACTIONS (1)
  - BREAST ENLARGEMENT [None]
